FAERS Safety Report 15959795 (Version 1)
Quarter: 2019Q1

REPORT INFORMATION
  Report Type: Spontaneous
  Country: US (occurrence: US)
  Receive Date: 20190214
  Receipt Date: 20190214
  Transmission Date: 20190417
  Serious: No
  Sender: FDA-Public Use
  Company Number: US-ROCHE-2195831

PATIENT
  Sex: Female
  Weight: 77.18 kg

DRUGS (3)
  1. CALCIUM ACETATE. [Concomitant]
     Active Substance: CALCIUM ACETATE
     Dosage: ONGOING
     Route: 048
     Dates: start: 20170812
  2. ALECENSA [Suspect]
     Active Substance: ALECTINIB HYDROCHLORIDE
     Indication: LUNG NEOPLASM MALIGNANT
     Dosage: 4CAPS TWICE DAILY; ONGOING
     Route: 048
     Dates: start: 20170803
  3. ALECENSA [Suspect]
     Active Substance: ALECTINIB HYDROCHLORIDE
     Indication: METASTASES TO LYMPH NODES

REACTIONS (1)
  - Pruritus [Not Recovered/Not Resolved]
